FAERS Safety Report 19222555 (Version 1)
Quarter: 2021Q2

REPORT INFORMATION
  Report Type: Spontaneous
  Country: US (occurrence: US)
  Receive Date: 20210505
  Receipt Date: 20210505
  Transmission Date: 20210717
  Serious: Yes (Hospitalization)
  Sender: FDA-Public Use
  Company Number: None

PATIENT
  Sex: Female

DRUGS (21)
  1. METOPROL TAR [Concomitant]
  2. FEROSUL [Concomitant]
     Active Substance: FERROUS SULFATE
  3. HYDROCO/APAP [Concomitant]
     Active Substance: ACETAMINOPHEN\HYDROCODONE
  4. LEVOTHYROXIN [Concomitant]
     Active Substance: LEVOTHYROXINE
  5. PANTOPRAZOLE [Concomitant]
     Active Substance: PANTOPRAZOLE
  6. ROSUVASTATIN. [Concomitant]
     Active Substance: ROSUVASTATIN
  7. ESBRIET [Suspect]
     Active Substance: PIRFENIDONE
     Indication: IDIOPATHIC PULMONARY FIBROSIS
     Dosage: 3 CAPS TID PO
     Route: 048
     Dates: start: 20210203
  8. ATORVASTATIN [Concomitant]
     Active Substance: ATORVASTATIN
  9. AZATHIOPRINE. [Concomitant]
     Active Substance: AZATHIOPRINE
  10. POT CHLORIDE ER [Concomitant]
  11. VITAMIN D [Concomitant]
     Active Substance: VITAMIN D NOS
  12. CARVEDILOL. [Concomitant]
     Active Substance: CARVEDILOL
  13. RANOLAZINE. [Concomitant]
     Active Substance: RANOLAZINE
  14. TORSEMIDE. [Concomitant]
     Active Substance: TORSEMIDE
  15. BRIMONIDINE [Concomitant]
     Active Substance: BRIMONIDINE TARTRATE
  16. FAMOTIDINE. [Concomitant]
     Active Substance: FAMOTIDINE
  17. HUMULIN N [Concomitant]
     Active Substance: INSULIN HUMAN
  18. IRBESARTAN. [Concomitant]
     Active Substance: IRBESARTAN
  19. SMZ/TMP DS [Concomitant]
     Active Substance: SULFAMETHOXAZOLE\TRIMETHOPRIM
  20. CLOPIDOGREL [Concomitant]
     Active Substance: CLOPIDOGREL BISULFATE
  21. LATANOPROST. [Concomitant]
     Active Substance: LATANOPROST

REACTIONS (2)
  - Cardiac disorder [None]
  - Respiratory disorder [None]
